FAERS Safety Report 11930369 (Version 2)
Quarter: 2016Q1

REPORT INFORMATION
  Report Type: Spontaneous
  Country: VE (occurrence: VE)
  Receive Date: 20160120
  Receipt Date: 20160321
  Transmission Date: 20160526
  Serious: Yes (Other)
  Sender: FDA-Public Use
  Company Number: VE-PFIZER INC-2016020198

PATIENT
  Age: 23 Year
  Sex: Female

DRUGS (1)
  1. AZULFIDINE [Suspect]
     Active Substance: SULFASALAZINE
     Indication: ARTHRITIS
     Dosage: 5 MG, DAILY (2 DF A DAY)

REACTIONS (4)
  - Pain [Unknown]
  - Drug ineffective [Unknown]
  - Autoimmune haemolytic anaemia [Recovered/Resolved]
  - Diarrhoea [Unknown]
